FAERS Safety Report 20101142 (Version 1)
Quarter: 2021Q4

REPORT INFORMATION
  Report Type: Spontaneous
  Country: US (occurrence: US)
  Receive Date: 20211123
  Receipt Date: 20211123
  Transmission Date: 20220303
  Serious: Yes (Other)
  Sender: FDA-Public Use
  Company Number: US-MACLEODS PHARMACEUTICALS US LTD-MAC2021033417

PATIENT

DRUGS (1)
  1. LEVOFLOXACIN [Suspect]
     Active Substance: LEVOFLOXACIN
     Indication: Urinary tract infection
     Dosage: 750 MILLIGRAM
     Route: 065

REACTIONS (5)
  - Urinary retention [Unknown]
  - Asthenia [Unknown]
  - Tremor [Unknown]
  - Dizziness [Unknown]
  - Diarrhoea [Unknown]
